FAERS Safety Report 10227915 (Version 3)
Quarter: 2014Q3

REPORT INFORMATION
  Report Type: Report from Study
  Country: CA (occurrence: CA)
  Receive Date: 20140610
  Receipt Date: 20140826
  Transmission Date: 20150326
  Serious: Yes (Hospitalization, Other)
  Sender: FDA-Public Use
  Company Number: CA-ABBVIE-14P-028-1242537-00

PATIENT
  Age: 82 Year
  Sex: Male

DRUGS (1)
  1. LUPRON DEPOT [Suspect]
     Active Substance: LEUPROLIDE ACETATE
     Indication: PROSTATE CANCER
     Route: 058
     Dates: start: 20071024

REACTIONS (11)
  - Gait disturbance [Unknown]
  - Diabetes mellitus [Unknown]
  - Blood glucose decreased [Unknown]
  - Malaise [Unknown]
  - Hypoacusis [Unknown]
  - Toe amputation [Unknown]
  - Dyspnoea [Unknown]
  - Renal failure [Unknown]
  - Cardiac disorder [Unknown]
  - Visual acuity reduced [Unknown]
  - Gangrene [Unknown]

NARRATIVE: CASE EVENT DATE: 20140618
